FAERS Safety Report 7206675-6 (Version None)
Quarter: 2011Q1

REPORT INFORMATION
  Report Type: 
  Country: None (occurrence: None)
  Receive Date: 20110103
  Receipt Date: 20101210
  Transmission Date: 20110831
  Serious: No
  Sender: FDA-Public Use
  Company Number: US-PFIZER INC-2010170463

PATIENT
  Sex: Female

DRUGS (4)
  1. NIFEDIPINE [Suspect]
  2. SITAGLIPTIN [Suspect]
  3. FLOVENT [Suspect]
  4. LIPITOR [Suspect]
     Dosage: UNK

REACTIONS (1)
  - ABDOMINAL PAIN UPPER [None]
